FAERS Safety Report 4494842-4 (Version None)
Quarter: 2004Q4

REPORT INFORMATION
  Report Type: 
  Country: None (occurrence: None)
  Receive Date: 20041103
  Receipt Date: 20041021
  Transmission Date: 20050328
  Serious: Yes (Hospitalization, Other)
  Sender: FDA-Public Use
  Company Number: GBWYE159629OCT04

PATIENT
  Age: 39 Year
  Sex: Male

DRUGS (5)
  1. RAPAMUNE [Suspect]
     Indication: RENAL TRANSPLANT
     Dosage: SEE IMAGE
     Route: 048
     Dates: start: 20031014, end: 20031015
  2. RAPAMUNE [Suspect]
     Indication: RENAL TRANSPLANT
     Dosage: SEE IMAGE
     Route: 048
     Dates: start: 20031016, end: 20031021
  3. AREDIA [Suspect]
     Indication: RENAL OSTEODYSTROPHY
     Route: 042
  4. CALCICHEW-D3 (CALCIUM CARBONATE/COLECALCIFEROL) [Concomitant]
  5. NEORAL [Concomitant]

REACTIONS (2)
  - CONDITION AGGRAVATED [None]
  - ECZEMA [None]
